FAERS Safety Report 11755999 (Version 2)
Quarter: 2015Q4

REPORT INFORMATION
  Report Type: Spontaneous
  Country: US (occurrence: US)
  Receive Date: 20151119
  Receipt Date: 20151119
  Transmission Date: 20160304
  Serious: No
  Sender: FDA-Public Use
  Company Number: US-ALLERGAN-1508882US

PATIENT
  Sex: Female

DRUGS (4)
  1. DIAMOX                             /00016901/ [Concomitant]
     Active Substance: ACETAZOLAMIDE
     Indication: INTRAOCULAR PRESSURE INCREASED
     Dosage: 500 MG, BID
     Route: 048
  2. TIMOLOL MALEATE. [Suspect]
     Active Substance: TIMOLOL MALEATE
     Indication: INTRAOCULAR PRESSURE INCREASED
     Dosage: UNK
     Route: 047
  3. BRIMONIDINE [Suspect]
     Active Substance: BRIMONIDINE TARTRATE
     Indication: INTRAOCULAR PRESSURE INCREASED
     Route: 047
  4. COMBIGAN [Suspect]
     Active Substance: BRIMONIDINE TARTRATE\TIMOLOL MALEATE
     Indication: INTRAOCULAR PRESSURE INCREASED
     Dosage: 2 GTT, TID
     Route: 047
     Dates: start: 201305

REACTIONS (9)
  - Medication error [Unknown]
  - Dry mouth [Not Recovered/Not Resolved]
  - Cheilitis [Not Recovered/Not Resolved]
  - Drug ineffective [Unknown]
  - Stomatitis [Not Recovered/Not Resolved]
  - Mastication disorder [Not Recovered/Not Resolved]
  - Hypersensitivity [Unknown]
  - Oral mucosal eruption [Not Recovered/Not Resolved]
  - Visual acuity reduced [Not Recovered/Not Resolved]
